FAERS Safety Report 21605892 (Version 2)
Quarter: 2022Q4

REPORT INFORMATION
  Report Type: Spontaneous
  Country: US (occurrence: US)
  Receive Date: 20221116
  Receipt Date: 20221122
  Transmission Date: 20230113
  Serious: No
  Sender: FDA-Public Use
  Company Number: US-BAUSCHBL-2022BNL002036

PATIENT
  Sex: Female

DRUGS (4)
  1. LOTEMAX SM [Suspect]
     Active Substance: LOTEPREDNOL ETABONATE
     Indication: Eye swelling
     Dosage: USING THE LOTEMAX 4 TIMES DAILY IN BOTH EYES
     Route: 047
     Dates: start: 20221101, end: 20221113
  2. LOTEMAX SM [Suspect]
     Active Substance: LOTEPREDNOL ETABONATE
     Dosage: JUST ONCE DAILY IN THE ^LATE AFTERNOON
     Route: 047
     Dates: start: 20221114
  3. PROLENSA [Concomitant]
     Active Substance: BROMFENAC SODIUM
     Indication: Product used for unknown indication
     Dates: start: 20221101
  4. POLYTRIM [Concomitant]
     Active Substance: POLYMYXIN B SULFATE\TRIMETHOPRIM SULFATE
     Indication: Product used for unknown indication
     Dates: start: 20221101, end: 20221103

REACTIONS (6)
  - Oropharyngeal pain [Recovering/Resolving]
  - Ear pain [Recovering/Resolving]
  - Dysphagia [Recovering/Resolving]
  - Pharyngeal swelling [Recovering/Resolving]
  - Instillation site swelling [Recovering/Resolving]
  - Inappropriate schedule of product administration [Unknown]

NARRATIVE: CASE EVENT DATE: 20221101
